FAERS Safety Report 7827213-0 (Version None)
Quarter: 2011Q4

REPORT INFORMATION
  Report Type: 
  Country: None (occurrence: None)
  Receive Date: 20111020
  Receipt Date: 20111011
  Transmission Date: 20120403
  Serious: Yes (Hospitalization)
  Sender: FDA-Public Use
  Company Number: US-CUBIST-2011S1000532

PATIENT
  Age: 76 Year
  Sex: Male
  Weight: 86.1 kg

DRUGS (2)
  1. VANCOMYCIN HCL [Suspect]
     Dosage: DOSE UNIT:U UNKNOWN
     Route: 065
     Dates: start: 20110509, end: 20110511
  2. VANCOMYCIN HCL [Suspect]
     Indication: CELLULITIS
     Dosage: DOSE UNIT:U UNKNOWN
     Route: 065
     Dates: start: 20110429, end: 20110507

REACTIONS (1)
  - CELLULITIS [None]
